FAERS Safety Report 22026767 (Version 2)
Quarter: 2023Q2

REPORT INFORMATION
  Report Type: Report from Study
  Country: US (occurrence: US)
  Receive Date: 20230223
  Receipt Date: 20230626
  Transmission Date: 20230722
  Serious: No
  Sender: FDA-Public Use
  Company Number: US-TAKEDA-2023TUS017687

PATIENT
  Age: 76 Year
  Sex: Male
  Weight: 105 kg

DRUGS (41)
  1. HUMAN IMMUNOGLOBULIN G [Suspect]
     Active Substance: HUMAN IMMUNOGLOBULIN G
     Indication: Immunodeficiency common variable
     Dosage: UNK
     Route: 065
  2. HUMAN IMMUNOGLOBULIN G [Suspect]
     Active Substance: HUMAN IMMUNOGLOBULIN G
     Dosage: 35 GRAM, Q4WEEKS
     Route: 042
     Dates: start: 20230518
  3. DIPHENHYDRAMINE [Concomitant]
     Active Substance: DIPHENHYDRAMINE
  4. WARFARIN [Concomitant]
     Active Substance: WARFARIN
  5. VITAMIN D3 [Concomitant]
     Active Substance: CHOLECALCIFEROL
  6. METOLAZONE [Concomitant]
     Active Substance: METOLAZONE
  7. RANOLAZINE [Concomitant]
     Active Substance: RANOLAZINE
  8. TIZANIDINE [Concomitant]
     Active Substance: TIZANIDINE
  9. SODIUM CHLORIDE [Concomitant]
     Active Substance: SODIUM CHLORIDE
  10. EPINEPHRINE [Concomitant]
     Active Substance: EPINEPHRINE
  11. FUROSEMIDE [Concomitant]
     Active Substance: FUROSEMIDE
  12. ATORVASTATIN [Concomitant]
     Active Substance: ATORVASTATIN
  13. TRAMADOL [Concomitant]
     Active Substance: TRAMADOL
  14. ACETAMINOPHEN [Concomitant]
     Active Substance: ACETAMINOPHEN
  15. CARVEDILOL [Concomitant]
     Active Substance: CARVEDILOL
  16. OZEMPIC [Concomitant]
     Active Substance: SEMAGLUTIDE
  17. AZELASTINE [Concomitant]
     Active Substance: AZELASTINE
  18. ALBUTEROL\IPRATROPIUM [Concomitant]
     Active Substance: ALBUTEROL\IPRATROPIUM
  19. GABAPENTIN [Concomitant]
     Active Substance: GABAPENTIN
  20. SODIUM CHLORIDE [Concomitant]
     Active Substance: SODIUM CHLORIDE
  21. BETAMETHASONE [Concomitant]
     Active Substance: BETAMETHASONE
  22. METHIMAZOLE [Concomitant]
     Active Substance: METHIMAZOLE
  23. MODAFINIL [Concomitant]
     Active Substance: MODAFINIL
  24. ASPIRIN [Concomitant]
     Active Substance: ASPIRIN
  25. POLYETHYLENE GLYCOL [Concomitant]
     Active Substance: POLYETHYLENE GLYCOL
  26. ISOSORBIDE MONONITRATE [Concomitant]
     Active Substance: ISOSORBIDE MONONITRATE
  27. MONTELUKAST [Concomitant]
     Active Substance: MONTELUKAST SODIUM
  28. TAMSULOSIN [Concomitant]
     Active Substance: TAMSULOSIN
  29. LIDOCAINE [Concomitant]
     Active Substance: LIDOCAINE
  30. FINASTERIDE [Concomitant]
     Active Substance: FINASTERIDE
  31. VITAMIN B [Concomitant]
     Active Substance: VITAMIN B
  32. ADVAIR HFA [Concomitant]
     Active Substance: FLUTICASONE PROPIONATE\SALMETEROL XINAFOATE
  33. SPIRIVA [Concomitant]
     Active Substance: TIOTROPIUM BROMIDE MONOHYDRATE
  34. TRESIBA [Concomitant]
     Active Substance: INSULIN DEGLUDEC
  35. DULOXETINE HYDROCHLORIDE [Concomitant]
     Active Substance: DULOXETINE HYDROCHLORIDE
  36. MECLIZINE [Concomitant]
     Active Substance: MECLIZINE HYDROCHLORIDE
  37. NITROGLYCERIN [Concomitant]
     Active Substance: NITROGLYCERIN
  38. VITAMIN B12 [Concomitant]
     Active Substance: CYANOCOBALAMIN
  39. PREDNISOLONE [Concomitant]
     Active Substance: PREDNISOLONE
  40. HUMALOG [Concomitant]
     Active Substance: INSULIN LISPRO
  41. HIGH DENSITY POLYETHYLENE [Concomitant]
     Active Substance: HIGH DENSITY POLYETHYLENE

REACTIONS (3)
  - Frequent bowel movements [Unknown]
  - Insurance issue [Unknown]
  - Product dose omission issue [Unknown]

NARRATIVE: CASE EVENT DATE: 20230207
